FAERS Safety Report 17564315 (Version 1)
Quarter: 2020Q1

REPORT INFORMATION
  Report Type: Spontaneous
  Country: US (occurrence: US)
  Receive Date: 20200313
  Receipt Date: 20200313
  Transmission Date: 20200409
  Serious: No
  Sender: FDA-Public Use
  Company Number: None

PATIENT
  Age: 91 Year
  Sex: Male

DRUGS (1)
  1. ZYTIGA [Suspect]
     Active Substance: ABIRATERONE ACETATE
     Route: 048
     Dates: start: 2019

REACTIONS (8)
  - Dyspnoea [None]
  - Fatigue [None]
  - Weight decreased [None]
  - Dizziness [None]
  - Diarrhoea [None]
  - Rhinorrhoea [None]
  - Swelling [None]
  - Angina pectoris [None]

NARRATIVE: CASE EVENT DATE: 20200313
